FAERS Safety Report 16248132 (Version 2)
Quarter: 2019Q2

REPORT INFORMATION
  Report Type: Report from Study
  Country: None (occurrence: US)
  Receive Date: 20190428
  Receipt Date: 20190617
  Transmission Date: 20190711
  Serious: Yes (Other)
  Sender: FDA-Public Use
  Company Number: US-ABBVIE-19K-163-2756865-00

PATIENT
  Age: 54 Year
  Sex: Female
  Weight: 101.7 kg

DRUGS (2)
  1. HUMIRA [Suspect]
     Active Substance: ADALIMUMAB
     Indication: PSORIATIC ARTHROPATHY
     Dosage: CITRATE FREE
     Route: 058
     Dates: start: 201904
  2. HUMIRA [Suspect]
     Active Substance: ADALIMUMAB
     Indication: PSORIATIC ARTHROPATHY
     Route: 058
     Dates: start: 201504, end: 20190204

REACTIONS (5)
  - Wound [Unknown]
  - Spinal laminectomy [Unknown]
  - Glycosylated haemoglobin increased [Unknown]
  - Cyst [Unknown]
  - Device issue [Unknown]

NARRATIVE: CASE EVENT DATE: 201811
